FAERS Safety Report 7916981-5 (Version None)
Quarter: 2011Q4

REPORT INFORMATION
  Report Type: 
  Country: None (occurrence: None)
  Receive Date: 20111116
  Receipt Date: 20111116
  Transmission Date: 20120403
  Serious: Yes (Hospitalization)
  Sender: FDA-Public Use
  Company Number: None

PATIENT
  Age: 51 Year
  Sex: Male
  Weight: 69.853 kg

DRUGS (1)
  1. ELOXATIN [Suspect]
     Indication: BILE DUCT CANCER
     Dosage: 67.5MG
     Route: 042
     Dates: start: 20110830, end: 20111024

REACTIONS (5)
  - HYPERSENSITIVITY [None]
  - TRISMUS [None]
  - DRUG INEFFECTIVE [None]
  - NEUROPATHY PERIPHERAL [None]
  - HICCUPS [None]
